FAERS Safety Report 6688104-4 (Version None)
Quarter: 2010Q2

REPORT INFORMATION
  Report Type: 
  Country: None (occurrence: None)
  Receive Date: 20100420
  Receipt Date: 20100409
  Transmission Date: 20101027
  Serious: Yes (Other)
  Sender: FDA-Public Use
  Company Number: US-JNJFOC-20100403302

PATIENT
  Sex: Female
  Weight: 82.56 kg

DRUGS (5)
  1. SANDOZ FENTANYL TD SYSTEM [Suspect]
     Indication: PAIN
     Route: 062
  2. SANDOZ FENTNAYL TD SYSTEM [Suspect]
     Indication: PAIN
     Route: 062
  3. PROZAC [Concomitant]
     Indication: DEPRESSION
     Route: 048
  4. REMERON [Concomitant]
     Indication: DEPRESSION
     Route: 048
  5. KLONOPIN [Concomitant]
     Indication: ANXIETY
     Route: 048

REACTIONS (4)
  - APPLICATION SITE RASH [None]
  - DEVICE LEAKAGE [None]
  - DRUG DOSE OMISSION [None]
  - GASTRIC ULCER [None]
